FAERS Safety Report 8508049-4 (Version None)
Quarter: 2012Q3

REPORT INFORMATION
  Report Type: 
  Country: None (occurrence: None)
  Receive Date: 20120713
  Receipt Date: 20120706
  Transmission Date: 20120928
  Serious: Yes (Other)
  Sender: FDA-Public Use
  Company Number: US-AMGEN-USASP2011033266

PATIENT
  Age: 50 Year
  Sex: Female
  Weight: 61.37 kg

DRUGS (23)
  1. ARANESP [Suspect]
     Dosage: 300 MUG, Q3WK
     Route: 058
     Dates: start: 20091019, end: 20101209
  2. ARANESP [Suspect]
     Dosage: 300 MUG, Q3WK
     Route: 058
     Dates: start: 20091019, end: 20101219
  3. ARANESP [Suspect]
     Dosage: 500 MUG, Q3WK
     Route: 058
     Dates: start: 20110324
  4. ARANESP [Suspect]
     Dosage: 400 MUG, Q3WK
     Route: 058
     Dates: start: 20101230, end: 20110303
  5. ARANESP [Suspect]
     Dosage: 400 MUG, Q3WK
     Route: 058
     Dates: start: 20101230, end: 20110303
  6. ARANESP [Suspect]
     Dosage: 500 MUG, Q3WK
     Route: 058
     Dates: start: 20110324
  7. ARANESP [Suspect]
     Dosage: 300 MUG, Q3WK
     Route: 058
     Dates: start: 20091019, end: 20101209
  8. ARANESP [Suspect]
     Dosage: 500 MUG, Q3WK
     Route: 058
     Dates: start: 20110324
  9. ARANESP [Suspect]
     Dosage: 500 MUG, Q3WK
     Route: 058
     Dates: start: 20110324
  10. ARANESP [Suspect]
     Dosage: 500 MUG, Q3WK
     Route: 058
     Dates: start: 20110324
  11. ARANESP [Suspect]
     Dosage: 500 MUG, Q3WK
     Route: 058
     Dates: start: 20110324
  12. ARANESP [Suspect]
     Dosage: 500 MUG, Q3WK
     Route: 058
     Dates: start: 20110324
  13. ARANESP [Suspect]
  14. COUMADIN [Concomitant]
  15. ARANESP [Suspect]
     Indication: RENAL FAILURE CHRONIC
     Dosage: 500 MUG, Q3WK
     Route: 058
     Dates: start: 20091019, end: 20101209
  16. ARANESP [Suspect]
     Dosage: 300 MUG, Q3WK
     Route: 058
     Dates: start: 20091019, end: 20101209
  17. ARANESP [Suspect]
     Dosage: 300 MUG, Q3WK
     Route: 058
     Dates: start: 20091019, end: 20101209
  18. ARANESP [Suspect]
     Dosage: 500 MUG, Q3WK
     Route: 058
     Dates: start: 20110324
  19. ARANESP [Suspect]
     Dosage: 500 MUG, Q3WK
     Route: 058
     Dates: start: 20110324
  20. ARANESP [Suspect]
     Dosage: 500 MUG, Q3WK
     Route: 058
     Dates: start: 20110324
  21. ARANESP [Suspect]
     Dosage: 500 MUG, Q3WK
     Route: 058
     Dates: start: 20110324
  22. ARANESP [Suspect]
     Dosage: 300 MUG, Q3WK
     Route: 058
     Dates: start: 20091019, end: 20101209
  23. ARANESP [Suspect]
     Dosage: 400 MUG, Q3WK
     Route: 058
     Dates: start: 20101230, end: 20110303

REACTIONS (1)
  - APLASIA PURE RED CELL [None]
